FAERS Safety Report 20676742 (Version 1)
Quarter: 2022Q2

REPORT INFORMATION
  Report Type: Other
  Country: US (occurrence: None)
  Receive Date: 20220406
  Receipt Date: 20220406
  Transmission Date: 20220721
  Serious: Yes (Hospitalization, Other)
  Sender: FDA-Public Use
  Company Number: US-ROCHE-2316577

PATIENT
  Sex: Female
  Weight: 46.762 kg

DRUGS (11)
  1. XOLAIR [Suspect]
     Active Substance: OMALIZUMAB
     Indication: Asthma
     Dosage: ONGOING: YES; DATE OF TREATMENT : 10/DEC/2021, 24/DEC/2021, 1/DEC/2022
     Route: 065
     Dates: start: 20070101
  2. XOLAIR [Suspect]
     Active Substance: OMALIZUMAB
     Indication: Chronic obstructive pulmonary disease
     Route: 058
     Dates: start: 2007, end: 2021
  3. XOLAIR [Suspect]
     Active Substance: OMALIZUMAB
     Indication: Asthma
     Dosage: ONGOING YES, 150 MG AND (1) 75 MG INJECTION EVERY 2 WEEKS
     Route: 058
  4. XOLAIR [Suspect]
     Active Substance: OMALIZUMAB
  5. OXYGEN [Concomitant]
     Active Substance: OXYGEN
     Dates: start: 2021
  6. HYDROCHLOROTHIAZIDE [Concomitant]
     Active Substance: HYDROCHLOROTHIAZIDE
     Indication: Hypertension
     Route: 048
  7. PANTOPRAZOLE [Concomitant]
     Active Substance: PANTOPRAZOLE
     Indication: Gastrooesophageal reflux disease
     Dosage: 1 HOUR BEFORE BREAKFAST, ONGOING YES
     Route: 048
     Dates: start: 2018
  8. BUPROPION [Concomitant]
     Active Substance: BUPROPION
     Indication: Ex-tobacco user
     Dosage: ONGOING YES
     Route: 048
     Dates: start: 2021
  9. NICOTINE [Concomitant]
     Active Substance: NICOTINE
     Dosage: ONGOING YES
     Route: 048
     Dates: start: 2021
  10. FUROSEMIDE [Concomitant]
     Active Substance: FUROSEMIDE
     Indication: Swelling
     Route: 048
  11. ROPINIROLE [Concomitant]
     Active Substance: ROPINIROLE
     Indication: Muscle spasms

REACTIONS (16)
  - Cardiac aneurysm [Recovered/Resolved]
  - Renal aneurysm [Recovered/Resolved]
  - Aortic aneurysm [Recovered/Resolved]
  - Fall [Unknown]
  - Hip fracture [Unknown]
  - Pneumonia [Recovered/Resolved]
  - Pneumonia pseudomonal [Recovered/Resolved]
  - Rhinovirus infection [Recovered/Resolved]
  - Dyspnoea [Recovered/Resolved]
  - Loss of consciousness [Recovered/Resolved]
  - Cough [Recovered/Resolved]
  - Weight decreased [Not Recovered/Not Resolved]
  - Alopecia [Not Recovered/Not Resolved]
  - Muscle spasms [Unknown]
  - Blood cholesterol increased [Not Recovered/Not Resolved]
  - Head injury [Unknown]

NARRATIVE: CASE EVENT DATE: 20080101
